FAERS Safety Report 12145012 (Version 1)
Quarter: 2016Q1

REPORT INFORMATION
  Report Type: Spontaneous
  Country: TW (occurrence: TW)
  Receive Date: 20160304
  Receipt Date: 20160304
  Transmission Date: 20160526
  Serious: Yes (Death)
  Sender: FDA-Public Use
  Company Number: PHHY2016TW027883

PATIENT
  Age: 65 Year
  Sex: Male

DRUGS (5)
  1. FLUPENTIXOL [Suspect]
     Active Substance: FLUPENTIXOL
     Indication: SCHIZOPHRENIA
     Dosage: 9 MG, QHS (AT DINNER)
     Route: 048
  2. KINZOLAM [Suspect]
     Active Substance: ESTAZOLAM
     Indication: SCHIZOPHRENIA
     Dosage: 4 MG (AT BREAKFAST), UNK
     Route: 065
  3. FLURAZEPAM [Suspect]
     Active Substance: FLURAZEPAM\FLURAZEPAM HYDROCHLORIDE
     Indication: SCHIZOPHRENIA
     Dosage: 30 MG (AT BREAKFAST AND BED TIME), BID
     Route: 065
  4. CLOZAPINE. [Suspect]
     Active Substance: CLOZAPINE
     Indication: SCHIZOPHRENIA
     Dosage: 100 MG (AT BREAKFAST), QD
     Route: 048
  5. ZOLPIDEM [Suspect]
     Active Substance: ZOLPIDEM\ZOLPIDEM TARTRATE
     Indication: SCHIZOPHRENIA
     Dosage: 10 MG (AT BREAKFAST AND BED TIME), BID
     Route: 065

REACTIONS (1)
  - Choking [Fatal]
